FAERS Safety Report 6648164-3 (Version None)
Quarter: 2010Q1

REPORT INFORMATION
  Report Type: 
  Country: None (occurrence: None)
  Receive Date: 20100324
  Receipt Date: 20100317
  Transmission Date: 20100710
  Serious: Yes (Life-Threatening, Hospitalization)
  Sender: FDA-Public Use
  Company Number: US-BRISTOL-MYERS SQUIBB COMPANY-15022445

PATIENT
  Age: 23 Year
  Sex: Male
  Weight: 50 kg

DRUGS (5)
  1. ATAZANAVIR [Suspect]
     Indication: HIV INFECTION
     Route: 048
     Dates: start: 20100304, end: 20100311
  2. RITONAVIR [Suspect]
     Indication: HIV INFECTION
     Route: 048
     Dates: start: 20100304, end: 20100311
  3. TENOFOVIR DF + EMTRICITABINE [Suspect]
     Indication: HIV INFECTION
     Dosage: 1 DF = 200/300MG
     Route: 048
     Dates: start: 20100304, end: 20100311
  4. DAPSONE [Suspect]
     Indication: PROPHYLAXIS
     Dosage: TAKEN ON 4MAR2010
     Route: 048
     Dates: end: 20100311
  5. AZITHROMYCIN [Concomitant]
     Indication: PROPHYLAXIS
     Route: 048

REACTIONS (6)
  - CYANOSIS [None]
  - DYSPNOEA [None]
  - FATIGUE [None]
  - HYPERBILIRUBINAEMIA [None]
  - METHAEMOGLOBINAEMIA [None]
  - OCULAR ICTERUS [None]
